FAERS Safety Report 12850880 (Version 1)
Quarter: 2016Q4

REPORT INFORMATION
  Report Type: Spontaneous
  Country: FR (occurrence: FR)
  Receive Date: 20161014
  Receipt Date: 20161014
  Transmission Date: 20170207
  Serious: Yes (Hospitalization)
  Sender: FDA-Public Use
  Company Number: FR-ASTRAZENECA-2016SF07664

PATIENT
  Age: 86 Year
  Sex: Female

DRUGS (2)
  1. INEXIUM [Suspect]
     Active Substance: ESOMEPRAZOLE
     Route: 048
     Dates: end: 20160912
  2. EFFEXOR XR [Suspect]
     Active Substance: VENLAFAXINE HYDROCHLORIDE
     Indication: DEPRESSION
     Route: 048
     Dates: end: 20160912

REACTIONS (4)
  - Hyponatraemia [Recovered/Resolved]
  - Pyrexia [Unknown]
  - Pyelonephritis acute [Unknown]
  - Fall [Unknown]

NARRATIVE: CASE EVENT DATE: 20160911
